FAERS Safety Report 9457900 (Version 2)
Quarter: 2013Q3

REPORT INFORMATION
  Report Type: Report from Study
  Country: US (occurrence: US)
  Receive Date: 20130814
  Receipt Date: 20130830
  Transmission Date: 20140515
  Serious: Yes (Hospitalization)
  Sender: FDA-Public Use
  Company Number: US-ASTELLAS-2013US008447

PATIENT
  Age: 10 Year
  Sex: Male
  Weight: 32 kg

DRUGS (9)
  1. TACROLIMUS OINTMENT [Suspect]
     Indication: DERMATITIS ATOPIC
     Dosage: 0.03 %, BID
     Route: 061
     Dates: start: 20091221
  2. TACROLIMUS OINTMENT [Suspect]
     Dosage: 0.03 %, BID
     Route: 061
  3. ELOCON [Concomitant]
     Indication: DERMATITIS ATOPIC
     Dosage: 0.1 %, BID PRN
     Route: 061
  4. SEPTRA [Concomitant]
     Indication: STAPHYLOCOCCAL SKIN INFECTION
     Dosage: 3 TSP, BID
     Route: 048
  5. ALBUTEROL                          /00139501/ [Concomitant]
     Indication: ASTHMA
     Dosage: EVERY 6-8 HOURS AND PRN
     Route: 055
  6. LEVOCETIRIZINE DIHYDROCHLORIDE [Concomitant]
     Indication: PRODUCT USED FOR UNKNOWN INDICATION
     Dosage: 2, 2.5 MG/5ML, QHS
     Route: 048
     Dates: start: 20130304
  7. NASONEX [Concomitant]
     Dosage: 1 DF, UID/QD
     Route: 045
     Dates: start: 20121126
  8. SINGULAIR [Concomitant]
     Indication: PRODUCT USED FOR UNKNOWN INDICATION
     Dosage: 5 MG, QHS
     Route: 048
     Dates: start: 20120924
  9. DULERA [Concomitant]
     Indication: PRODUCT USED FOR UNKNOWN INDICATION
     Dosage: 2 DF, BID
     Route: 055
     Dates: start: 20120924

REACTIONS (2)
  - Dermatitis exfoliative [Unknown]
  - Dermatitis atopic [Unknown]
